FAERS Safety Report 6647176-3 (Version None)
Quarter: 2010Q1

REPORT INFORMATION
  Report Type: 
  Country: None (occurrence: None)
  Receive Date: 20100323
  Receipt Date: 20100317
  Transmission Date: 20100710
  Serious: Yes (Hospitalization)
  Sender: FDA-Public Use
  Company Number: JP-GENENTECH-290148

PATIENT
  Age: 52 Year
  Sex: Male

DRUGS (13)
  1. RITUXAN [Suspect]
     Indication: B-CELL LYMPHOMA
     Dosage: 250 MG/M2, QD
     Route: 042
     Dates: start: 20090407
  2. RITUXAN [Suspect]
     Dosage: 250 MG/M2, QD
     Route: 042
     Dates: start: 20090414
  3. ZEVALIN [Suspect]
     Indication: B-CELL LYMPHOMA
     Dosage: 14.8 MBQ/KG, QD
     Route: 042
     Dates: start: 20090414
  4. ZEVALIN [Concomitant]
     Dosage: 130 MBQ, SINGLE
     Route: 042
     Dates: start: 20090407
  5. LOXONIN [Concomitant]
     Indication: PREMEDICATION
     Dosage: 60 MG, SINGLE
     Route: 048
     Dates: start: 20090407
  6. LOXONIN [Concomitant]
     Dosage: UNK
     Dates: start: 20090414
  7. POLARAMINE [Concomitant]
     Indication: PREMEDICATION
     Dosage: 2 MG, SINGLE
     Route: 048
     Dates: start: 20090407
  8. POLARAMINE [Concomitant]
     Dosage: UNK
     Dates: start: 20090414
  9. LEVOFLOXACIN [Concomitant]
     Indication: CYSTITIS
     Dosage: UNK
     Dates: start: 20090412, end: 20090414
  10. LEVOFLOXACIN [Concomitant]
     Dosage: UNK
     Dates: start: 20090417, end: 20090423
  11. LEVOFLOXACIN [Concomitant]
     Dosage: 300 MG, QD
     Route: 048
     Dates: start: 20090511, end: 20090524
  12. TSUKUSHI A.M. [Concomitant]
     Indication: CONSTIPATION
     Dosage: 3.9 G, QD
     Route: 048
     Dates: start: 20090417, end: 20090430
  13. LECICARBON [Concomitant]
     Indication: CONSTIPATION
     Dosage: UNK
     Route: 054
     Dates: start: 20090331

REACTIONS (1)
  - BONE MARROW FAILURE [None]
